FAERS Safety Report 8157937-X (Version None)
Quarter: 2012Q1

REPORT INFORMATION
  Report Type: 
  Country: None (occurrence: None)
  Receive Date: 20120222
  Receipt Date: 20120213
  Transmission Date: 20120608
  Serious: Yes (Other)
  Sender: FDA-Public Use
  Company Number: PHFR2012GB000926

PATIENT
  Sex: Male

DRUGS (1)
  1. CLOZARIL [Suspect]
     Dosage: 250 MG, DAILY
     Route: 048
     Dates: start: 20111111

REACTIONS (2)
  - UPPER RESPIRATORY TRACT INFECTION [None]
  - DIFFERENTIAL WHITE BLOOD CELL COUNT ABNORMAL [None]
